FAERS Safety Report 8082935-4 (Version None)
Quarter: 2012Q1

REPORT INFORMATION
  Report Type: 
  Country: None (occurrence: None)
  Receive Date: 20120127
  Receipt Date: 20110307
  Transmission Date: 20120608
  Serious: No
  Sender: FDA-Public Use
  Company Number: US-ABBOTT-11P-163-0710100-00

PATIENT
  Age: 45 Year
  Sex: Male

DRUGS (5)
  1. HUMIRA [Suspect]
  2. PRAVASTATIN [Concomitant]
     Indication: PRODUCT USED FOR UNKNOWN INDICATION
  3. HUMIRA [Suspect]
     Dosage: 2 WEEKS FOLLOWING
  4. HUMIRA [Suspect]
     Indication: PSORIASIS
     Dosage: DAY 1
     Dates: start: 20110225
  5. HUMIRA [Suspect]
     Dosage: 1 WEEK FOLLOWING

REACTIONS (4)
  - INJECTION SITE INDURATION [None]
  - INJECTION SITE WARMTH [None]
  - INJECTION SITE ERYTHEMA [None]
  - INJECTION SITE DISCOLOURATION [None]
